FAERS Safety Report 10010109 (Version 2)
Quarter: 2014Q1

REPORT INFORMATION
  Report Type: Spontaneous
  Country: US (occurrence: US)
  Receive Date: 20140312
  Receipt Date: 20140312
  Transmission Date: 20141002
  Serious: No
  Sender: FDA-Public Use
  Company Number: US-INCYTE CORPORATION-2013IN001333

PATIENT
  Age: 56 Year
  Sex: Female
  Weight: 67.12 kg

DRUGS (14)
  1. JAKAFI [Suspect]
     Indication: MYELOFIBROSIS
     Dosage: 20 MG, QD
     Route: 048
     Dates: start: 20130619
  2. JAKAFI [Suspect]
     Dosage: 10 MG, BID
     Route: 048
  3. CALCIUM SUPPLEMENT [Concomitant]
  4. VITAMIN D3 [Concomitant]
  5. VITAMIN E [Concomitant]
  6. PENTOXIFYLLINE [Concomitant]
  7. CEPHALEXIN [Concomitant]
     Dosage: 500 MG AS DIRECTED
     Route: 048
  8. ANASTROZOLE [Concomitant]
     Dosage: 1 MG AS DIRECTED
     Route: 048
  9. ASPIR-81 [Concomitant]
     Dosage: 81 MG, QD
     Route: 048
  10. TRAMADOL [Concomitant]
     Dosage: 50 MG, QD PRN
     Route: 048
  11. AMLODIPINE [Concomitant]
     Dosage: 5 MG, QD PRN
     Route: 048
  12. MECLIZINE [Concomitant]
     Dosage: 12.5 MG, QD PRN
     Route: 048
  13. ZOLPIDEM [Concomitant]
     Dosage: 10 MG, QD, PRN
     Route: 048
  14. CLONAZEPAM [Concomitant]
     Dosage: 0.5 MG, QD, PRN

REACTIONS (6)
  - Somnolence [Unknown]
  - Night sweats [Unknown]
  - Migraine [Unknown]
  - White blood cell count decreased [Unknown]
  - Haemoglobin decreased [Unknown]
  - Platelet count decreased [Unknown]
